FAERS Safety Report 24276641 (Version 2)
Quarter: 2025Q4

REPORT INFORMATION
  Report Type: Spontaneous
  Country: EU (occurrence: EU)
  Receive Date: 20240903
  Receipt Date: 20251005
  Transmission Date: 20260117
  Serious: Yes (Other)
  Sender: AUROBINDO
  Company Number: EU-MLMSERVICE-20240821-PI165821-00108-4

PATIENT
  Age: 45 Year
  Sex: Male

DRUGS (12)
  1. ZOLPIDEM [Suspect]
     Active Substance: ZOLPIDEM TARTRATE
     Indication: Schizophrenia
     Dosage: UNK
     Route: 065
     Dates: start: 201802
  2. ZOLPIDEM [Suspect]
     Active Substance: ZOLPIDEM TARTRATE
     Indication: Drug abuse
  3. CLOZAPINE [Suspect]
     Active Substance: CLOZAPINE
     Indication: Drug abuse
     Dosage: 450 MILLIGRAM, ONCE A DAY (INCREASED ONLY SLIGHTLY)
     Route: 065
     Dates: start: 2014, end: 2014
  4. CLOZAPINE [Suspect]
     Active Substance: CLOZAPINE
     Indication: Schizophrenia
     Dosage: 400 MILLIGRAM, ONCE A DAY (TITRATED)
     Route: 065
     Dates: start: 2014, end: 2014
  5. CLOZAPINE [Suspect]
     Active Substance: CLOZAPINE
     Dosage: 100 MILLIGRAM, ONCE A DAY (GRADUALLY REDUCED IN THE EVENING)
     Route: 065
     Dates: start: 2014
  6. RISPERIDONE [Concomitant]
     Active Substance: RISPERIDONE
     Indication: Drug abuse
     Dosage: 37.5 MILLIGRAM, UNK
     Route: 065
     Dates: start: 201711, end: 2018
  7. RISPERIDONE [Concomitant]
     Active Substance: RISPERIDONE
     Indication: Schizophrenia
     Dosage: 50 MILLIGRAM, UNK
     Route: 065
     Dates: start: 2014, end: 201711
  8. PROMETHAZINE [Concomitant]
     Active Substance: PROMETHAZINE HYDROCHLORIDE
     Indication: Insomnia
     Dosage: 50 MILLIGRAM, ONCE A DAY (IN THE EVENING)
     Route: 065
     Dates: start: 201802
  9. PANTOPRAZOLE [Concomitant]
     Active Substance: PANTOPRAZOLE
     Indication: Gastrooesophageal reflux disease
     Dosage: 40 MILLIGRAM, ONCE A DAY (IN THE MORNING)
     Route: 065
     Dates: start: 201711
  10. OXAZEPAM [Concomitant]
     Active Substance: OXAZEPAM
     Indication: Anxiety
     Dosage: 10 MILLIGRAM, ONCE A DAY (IN THE EVENING)
     Route: 065
     Dates: start: 201711
  11. PALIPERIDONE PALMITATE [Concomitant]
     Active Substance: PALIPERIDONE PALMITATE
     Indication: Schizophrenia
     Dosage: UNK
     Route: 065
  12. PALIPERIDONE PALMITATE [Concomitant]
     Active Substance: PALIPERIDONE PALMITATE
     Indication: Drug abuse

REACTIONS (3)
  - Schizophrenia [Recovering/Resolving]
  - Condition aggravated [Recovering/Resolving]
  - Hallucination [Recovered/Resolved]

NARRATIVE: CASE EVENT DATE: 20180101
